FAERS Safety Report 5315604-1 (Version None)
Quarter: 2007Q2

REPORT INFORMATION
  Report Type: 
  Country: None (occurrence: None)
  Receive Date: 20070503
  Receipt Date: 20070423
  Transmission Date: 20071010
  Serious: Yes (Death)
  Sender: FDA-Public Use
  Company Number: GB-GENENTECH-240669

PATIENT
  Age: 71 Year
  Sex: Male

DRUGS (2)
  1. MABTHERA [Suspect]
     Indication: IDIOPATHIC THROMBOCYTOPENIC PURPURA
     Dosage: 375 MG/M2, 1/WEEK
     Route: 042
  2. MABTHERA [Suspect]
     Indication: HYPOPLASTIC ANAEMIA

REACTIONS (1)
  - BRONCHIECTASIS [None]
